FAERS Safety Report 16646365 (Version 1)
Quarter: 2019Q3

REPORT INFORMATION
  Report Type: Spontaneous
  Country: US (occurrence: US)
  Receive Date: 20190615
  Receipt Date: 20190615
  Transmission Date: 20191004
  Serious: No
  Sender: FDA-Public Use
  Company Number: None

PATIENT
  Age: 49 Year
  Sex: Female

DRUGS (4)
  1. VOSEVI [Suspect]
     Active Substance: SOFOSBUVIR\VELPATASVIR\VOXILAPREVIR
     Route: 048
     Dates: start: 20190530
  2. TOPAMAX [Concomitant]
     Active Substance: TOPIRAMATE
  3. PRILOSEC [Concomitant]
     Active Substance: OMEPRAZOLE MAGNESIUM
  4. GABAPENTIN. [Concomitant]
     Active Substance: GABAPENTIN

REACTIONS (6)
  - Insomnia [None]
  - Product dose omission [None]
  - Drug interaction [None]
  - Fatigue [None]
  - Memory impairment [None]
  - Treatment noncompliance [None]

NARRATIVE: CASE EVENT DATE: 20190610
